FAERS Safety Report 5653652-2 (Version None)
Quarter: 2008Q1

REPORT INFORMATION
  Report Type: 
  Country: None (occurrence: None)
  Receive Date: 20080306
  Receipt Date: 20080226
  Transmission Date: 20080703
  Serious: Yes (Other)
  Sender: FDA-Public Use
  Company Number: US-ELI_LILLY_AND_COMPANY-US200802006037

PATIENT
  Sex: Male

DRUGS (3)
  1. CIALIS [Suspect]
     Indication: PEYRONIE'S DISEASE
     Dosage: 20 MG, UNK
     Dates: start: 20060101
  2. ATENOLOL [Concomitant]
     Dosage: 25 MG, UNK
  3. DIOVAN [Concomitant]

REACTIONS (3)
  - FLUSHING [None]
  - SUPRAVENTRICULAR TACHYCARDIA [None]
  - THERAPEUTIC RESPONSE DECREASED [None]
